FAERS Safety Report 4831044-3 (Version None)
Quarter: 2005Q4

REPORT INFORMATION
  Report Type: 
  Country: None (occurrence: None)
  Receive Date: 20051118
  Receipt Date: 20051107
  Transmission Date: 20060501
  Serious: Yes (Other)
  Sender: FDA-Public Use
  Company Number: US-BOEHRINGER INGELHEIM PHARMACEUTICALS, INC.-2005-DE-04922GD

PATIENT
  Sex: Male
  Weight: 83 kg

DRUGS (2)
  1. PRAMIPEXOLE [Suspect]
     Indication: PARKINSON'S DISEASE
  2. CARBIDOPA-L-DOPA [Concomitant]
     Indication: PARKINSON'S DISEASE

REACTIONS (3)
  - HYPERPHAGIA [None]
  - LIBIDO INCREASED [None]
  - WEIGHT INCREASED [None]
